FAERS Safety Report 23569566 (Version 1)
Quarter: 2024Q1

REPORT INFORMATION
  Report Type: Spontaneous
  Country: KR (occurrence: KR)
  Receive Date: 20240227
  Receipt Date: 20240227
  Transmission Date: 20240409
  Serious: Yes (Hospitalization)
  Sender: FDA-Public Use
  Company Number: KR-SA-2024SA062775

PATIENT
  Age: 78 Year
  Sex: Female
  Weight: 55 kg

DRUGS (10)
  1. ZALTRAP [Suspect]
     Active Substance: ZIV-AFLIBERCEPT
     Indication: Colorectal cancer
     Dosage: 4 MG/KG, INJECTION, 2 WEEK
     Dates: start: 20210713
  2. ZALTRAP [Suspect]
     Active Substance: ZIV-AFLIBERCEPT
     Indication: Rectal cancer
     Dosage: 4 MG/KG, INJECTION
     Dates: start: 20210914
  3. ZALTRAP [Suspect]
     Active Substance: ZIV-AFLIBERCEPT
     Dosage: 4 MG/KG, 2 WEEK
     Dates: start: 20220104
  4. ZALTRAP [Suspect]
     Active Substance: ZIV-AFLIBERCEPT
     Dosage: 3.2 MG/KG,  INJECTION, 2 WEEK
     Dates: start: 20210713
  5. ZALTRAP [Suspect]
     Active Substance: ZIV-AFLIBERCEPT
     Dosage: 3.2 MG/KG, INJECTION, 2 WEEK
     Dates: start: 20210914
  6. ZALTRAP [Suspect]
     Active Substance: ZIV-AFLIBERCEPT
     Dosage: 3.2 MG/KG, INJECTION
     Dates: start: 20220104
  7. IRINOTECAN HYDROCHLORIDE [Suspect]
     Active Substance: IRINOTECAN HYDROCHLORIDE
     Indication: Rectal cancer
     Dosage: 144 MG/M2, 2 WEEK
     Dates: start: 20210713
  8. FLUOROURACIL [Suspect]
     Active Substance: FLUOROURACIL
     Indication: Rectal cancer
     Dosage: 160 MG/M2
     Dates: start: 20210713
  9. FLUOROURACIL [Suspect]
     Active Substance: FLUOROURACIL
     Dosage: 1920 MG/M2
     Dates: start: 20210713
  10. CEFACLOR [Concomitant]
     Active Substance: CEFACLOR
     Indication: Sinusitis
     Dosage: 250 MG
     Dates: start: 20221008

REACTIONS (1)
  - Sinusitis [Not Recovered/Not Resolved]

NARRATIVE: CASE EVENT DATE: 20220105
